FAERS Safety Report 21974003 (Version 1)
Quarter: 2023Q1

REPORT INFORMATION
  Report Type: Spontaneous
  Country: US (occurrence: None)
  Receive Date: 20230207
  Receipt Date: 20230207
  Transmission Date: 20230418
  Serious: Yes (Hospitalization)
  Sender: FDA-Public Use
  Company Number: None

PATIENT
  Sex: Male

DRUGS (1)
  1. PIRFENIDONE [Suspect]
     Active Substance: PIRFENIDONE
     Dosage: 801MG TID ORAL
     Route: 048

REACTIONS (8)
  - Swelling face [None]
  - Peripheral swelling [None]
  - Weight decreased [None]
  - Skin exfoliation [None]
  - Nausea [None]
  - Decreased appetite [None]
  - Skin discolouration [None]
  - Therapy cessation [None]
